FAERS Safety Report 21878495 (Version 4)
Quarter: 2023Q1

REPORT INFORMATION
  Report Type: Spontaneous
  Country: US (occurrence: US)
  Receive Date: 20230118
  Receipt Date: 20230213
  Transmission Date: 20230417
  Serious: Yes (Hospitalization, Other)
  Sender: FDA-Public Use
  Company Number: US-SA-SAC20230116001502

PATIENT
  Age: 63 Year
  Sex: Female
  Weight: 200 kg

DRUGS (11)
  1. AUBAGIO [Suspect]
     Active Substance: TERIFLUNOMIDE
     Indication: Illness
     Dosage: 14 MG, QD
     Route: 048
     Dates: start: 2017, end: 202212
  2. AUBAGIO [Suspect]
     Active Substance: TERIFLUNOMIDE
     Indication: Rhinitis allergic
  3. AUBAGIO [Suspect]
     Active Substance: TERIFLUNOMIDE
     Indication: Multiple sclerosis
  4. VUMERITY [Suspect]
     Active Substance: DIROXIMEL FUMARATE
     Dosage: UNK
  5. SHINGRIX [Concomitant]
     Active Substance: RECOMBINANT VARICELLA ZOSTER VIRUS (VZV) GLYCOPROTEIN E
     Dosage: UNK
  6. VITAMIN D3 [Concomitant]
     Active Substance: CHOLECALCIFEROL
     Dosage: UNK
  7. LOSARTAN POTASSIUM [Concomitant]
     Active Substance: LOSARTAN POTASSIUM
     Dosage: UNK
  8. MODERNA COVID-19 VACCINE [Concomitant]
     Active Substance: ELASOMERAN
     Indication: Immunisation
     Dosage: UNK
  9. METHOCARBAMOL [Concomitant]
     Active Substance: METHOCARBAMOL
  10. METFORMIN HYDROCHLORIDE [Concomitant]
     Active Substance: METFORMIN HYDROCHLORIDE
  11. ASPIRIN [Concomitant]
     Active Substance: ASPIRIN

REACTIONS (8)
  - Transient ischaemic attack [Recovered/Resolved]
  - Ear discomfort [Recovered/Resolved]
  - Hypoacusis [Recovered/Resolved]
  - Urinary tract infection [Recovered/Resolved]
  - Erythema [Unknown]
  - Constipation [Unknown]
  - Flushing [Unknown]
  - Product use in unapproved indication [Unknown]

NARRATIVE: CASE EVENT DATE: 20230129
